FAERS Safety Report 14340261 (Version 1)
Quarter: 2018Q1

REPORT INFORMATION
  Report Type: Spontaneous
  Country: FR (occurrence: FR)
  Receive Date: 20180101
  Receipt Date: 20180101
  Transmission Date: 20180509
  Serious: Yes (Hospitalization)
  Sender: FDA-Public Use
  Company Number: FR-TEVA-2017-FR-837072

PATIENT
  Age: 58 Year
  Sex: Male

DRUGS (7)
  1. NOCTAMIDE 2 MG, COMPRIM? S?CABLE [Suspect]
     Active Substance: LORMETAZEPAM
     Route: 048
     Dates: start: 20170814, end: 20170814
  2. IRBESARTAN. [Suspect]
     Active Substance: IRBESARTAN
     Route: 048
     Dates: start: 20170814, end: 20170814
  3. FLECA?NE L.P. 150 MG, G?LULE ? LIB?RATION PROLONG?E [Suspect]
     Active Substance: FLECAINIDE ACETATE
     Route: 048
     Dates: start: 20170814, end: 20170814
  4. XARELTO [Suspect]
     Active Substance: RIVAROXABAN
     Route: 048
     Dates: start: 20170814, end: 20170814
  5. LERCAN 10 MG, COMPRIM? PELLICUL? S?CABLE [Suspect]
     Active Substance: LERCANIDIPINE HYDROCHLORIDE
     Route: 048
     Dates: start: 20170814, end: 20170814
  6. TRIMEBUTINE [Suspect]
     Active Substance: TRIMEBUTINE
     Route: 048
     Dates: start: 20170814, end: 20170814
  7. DILTIAZEM. [Suspect]
     Active Substance: DILTIAZEM
     Route: 048
     Dates: start: 20170814, end: 20170814

REACTIONS (2)
  - Coma [Unknown]
  - Cardiogenic shock [Unknown]

NARRATIVE: CASE EVENT DATE: 20170814
